FAERS Safety Report 5358571-7 (Version None)
Quarter: 2007Q2

REPORT INFORMATION
  Report Type: 
  Country: None (occurrence: None)
  Receive Date: 20070613
  Receipt Date: 20070613
  Transmission Date: 20071010
  Serious: Yes (Life-Threatening, Hospitalization, Other)
  Sender: FDA-Public Use
  Company Number: None

PATIENT
  Sex: Female
  Weight: 63.5036 kg

DRUGS (1)
  1. BACTRIM [Suspect]
     Indication: URINARY TRACT INFECTION
     Dosage: 1 EVERY 12 HRS.
     Dates: start: 20050810, end: 20050811

REACTIONS (5)
  - ASTHENIA [None]
  - CIRCULATORY COLLAPSE [None]
  - COMA [None]
  - LOSS OF CONSCIOUSNESS [None]
  - MENINGITIS ASEPTIC [None]
